FAERS Safety Report 5193363-3 (Version None)
Quarter: 2006Q4

REPORT INFORMATION
  Report Type: 
  Country: None (occurrence: None)
  Receive Date: 20061228
  Receipt Date: 20061017
  Transmission Date: 20070319
  Serious: No
  Sender: FDA-Public Use
  Company Number: US-GLAXOSMITHKLINE-A0623893A

PATIENT
  Age: 52 Year
  Sex: Male

DRUGS (1)
  1. AVODART [Suspect]
     Dosage: 1CAP UNKNOWN
     Route: 048

REACTIONS (1)
  - COUGH [None]
